FAERS Safety Report 9803020 (Version 3)
Quarter: 2014Q1

REPORT INFORMATION
  Report Type: Report from Study
  Country: TH (occurrence: TH)
  Receive Date: 20140108
  Receipt Date: 20140129
  Transmission Date: 20141002
  Serious: Yes (Death, Life-Threatening, Hospitalization)
  Sender: FDA-Public Use
  Company Number: TH-ROCHE-1032992

PATIENT
  Age: 73 Year
  Sex: Male
  Weight: 54 kg

DRUGS (17)
  1. OBINUTUZUMAB [Suspect]
     Indication: DIFFUSE LARGE B-CELL LYMPHOMA
     Dosage: DATE OF MOST RECENT DOSE PRIOR TO AE ONSET : 16/JAN/2012, DOSE: 4 MG/ML, LAST DOSE VOLUME: 250 ML
     Route: 042
     Dates: start: 20120116
  2. CYCLOPHOSPHAMIDE [Suspect]
     Indication: DIFFUSE LARGE B-CELL LYMPHOMA
     Dosage: DATE OF LAST DOSE PRIOR TO SAE : 16/JAN/2012, LAST DOSE: 1170.5 MG
     Route: 042
     Dates: start: 20120116
  3. DOXORUBICIN [Suspect]
     Indication: DIFFUSE LARGE B-CELL LYMPHOMA
     Dosage: DATE OF LAST DOSE PRIOR TO SAE : 16/JAN/2012, LAST DOSE: 78.5 MG
     Route: 042
     Dates: start: 20120116
  4. VINCRISTINE [Suspect]
     Indication: DIFFUSE LARGE B-CELL LYMPHOMA
     Dosage: DATE OF LAST DOSE PRIOR TO SAE : 16/JAN/2012, LAST DOSE: 2 MG
     Route: 040
     Dates: start: 20120116
  5. PREDNISONE [Suspect]
     Indication: DIFFUSE LARGE B-CELL LYMPHOMA
     Dosage: DATE OF LAST DOSE PRIOR TO SAE : 20/JAN/2012, LAST DOSE: 100 MG
     Route: 048
     Dates: start: 20120116
  6. DEXAMETHASONE [Concomitant]
     Indication: PREMEDICATION
     Route: 065
     Dates: start: 20120116, end: 20120116
  7. PARACETAMOL [Concomitant]
     Indication: PREMEDICATION
     Route: 065
     Dates: start: 20120116, end: 20120116
  8. PARACETAMOL [Concomitant]
     Route: 065
     Dates: start: 20120126, end: 20120130
  9. PARACETAMOL [Concomitant]
     Route: 065
     Dates: start: 20120123, end: 20120123
  10. PIRITON [Concomitant]
     Indication: PREMEDICATION
     Route: 065
     Dates: start: 20120116, end: 20120116
  11. ONSIA [Concomitant]
     Indication: VOMITING
     Route: 065
     Dates: start: 20120116, end: 20120116
  12. ONSIA [Concomitant]
     Route: 065
     Dates: start: 20120116, end: 20120127
  13. SENOKOT [Concomitant]
     Indication: CONSTIPATION
     Route: 065
     Dates: start: 20120116, end: 20120127
  14. VITAMIN B COMPLEX [Concomitant]
     Route: 065
     Dates: start: 20120116, end: 20120129
  15. LACTULOSE [Concomitant]
     Route: 065
     Dates: start: 20120124, end: 20120125
  16. PLASIL [Concomitant]
     Route: 065
     Dates: start: 20120125, end: 20120125
  17. LOSEC (THAILAND) [Concomitant]
     Route: 065
     Dates: start: 20120129, end: 20120130

REACTIONS (3)
  - Pneumonia [Fatal]
  - Thrombocytopenia [Not Recovered/Not Resolved]
  - Neutropenia [Not Recovered/Not Resolved]
